FAERS Safety Report 15463885 (Version 1)
Quarter: 2018Q4

REPORT INFORMATION
  Report Type: Spontaneous
  Country: US (occurrence: US)
  Receive Date: 20181004
  Receipt Date: 20181004
  Transmission Date: 20190204
  Serious: Yes (Hospitalization)
  Sender: FDA-Public Use
  Company Number: US-JNJFOC-20181003187

PATIENT
  Age: 53 Year
  Sex: Female

DRUGS (1)
  1. INVOKANA [Suspect]
     Active Substance: CANAGLIFLOZIN
     Indication: TYPE 2 DIABETES MELLITUS
     Route: 048
     Dates: start: 20150807

REACTIONS (7)
  - Gas gangrene [Recovering/Resolving]
  - Lymphangitis [Recovering/Resolving]
  - Osteonecrosis [Recovering/Resolving]
  - Cellulitis [Recovering/Resolving]
  - Diabetic foot [Recovering/Resolving]
  - Toe amputation [Unknown]
  - Osteomyelitis acute [Recovering/Resolving]

NARRATIVE: CASE EVENT DATE: 201701
